FAERS Safety Report 20533197 (Version 2)
Quarter: 2022Q1

REPORT INFORMATION
  Report Type: Report from Study
  Country: LB (occurrence: LB)
  Receive Date: 20220301
  Receipt Date: 20220323
  Transmission Date: 20220423
  Serious: Yes (Other)
  Sender: FDA-Public Use
  Company Number: LB-NOVARTISPH-NVSC2022LB040677

PATIENT
  Age: 88 Year
  Sex: Male
  Weight: 67 kg

DRUGS (1)
  1. GLIVEC [Suspect]
     Active Substance: IMATINIB MESYLATE
     Indication: Chronic myeloid leukaemia
     Dosage: 4 DOSAGE FORM, QD
     Route: 048
     Dates: start: 201906, end: 202010

REACTIONS (4)
  - Cerebrovascular accident [Unknown]
  - COVID-19 [Recovered/Resolved]
  - Balance disorder [Unknown]
  - Dizziness [Unknown]

NARRATIVE: CASE EVENT DATE: 20220204
